FAERS Safety Report 22031578 (Version 2)
Quarter: 2023Q1

REPORT INFORMATION
  Report Type: Spontaneous
  Country: AU (occurrence: AU)
  Receive Date: 20230224
  Receipt Date: 20230306
  Transmission Date: 20230417
  Serious: Yes (Hospitalization)
  Sender: FDA-Public Use
  Company Number: AU-009507513-2302AUS006923

PATIENT
  Age: 88 Year
  Sex: Female

DRUGS (14)
  1. LAGEVRIO [Suspect]
     Active Substance: MOLNUPIRAVIR
     Indication: COVID-19 treatment
     Dosage: UNK, BID
     Route: 048
     Dates: start: 20220629, end: 20220701
  2. OMEPRAZOLE [Concomitant]
     Active Substance: OMEPRAZOLE
     Dosage: 20 MILLIGRAM, QD (1 TABLET DAILY)
     Route: 048
  3. METOPROLOL TARTRATE [Concomitant]
     Active Substance: METOPROLOL TARTRATE
     Dosage: 50 MILLIGRAM, BID (1 TABLET TWICE A DAY.)
     Route: 048
  4. METFORMIN HYDROCHLORIDE [Concomitant]
     Active Substance: METFORMIN HYDROCHLORIDE
     Dosage: 1 GRAM, QAM (1 TABLET IN THE MORNING)
     Route: 048
  5. DIGOXIN [Concomitant]
     Active Substance: DIGOXIN
     Dosage: 93.75 MICROGRAM, QD (L? DAILY)
     Route: 048
  6. FUROSEMIDE [Concomitant]
     Active Substance: FUROSEMIDE
     Dosage: 20 MILLIGRAM, BID (1 TABLET TWICE A DAY)
     Route: 048
  7. NITROGLYCERIN [Concomitant]
     Active Substance: NITROGLYCERIN
     Dosage: 1 SPRAY DAILY P.R.N.
  8. KENACOMB OTIC [Concomitant]
     Dosage: 1 APPLICATION BOTH SIDES
  9. LEXAPRO [Concomitant]
     Active Substance: ESCITALOPRAM OXALATE
     Dosage: 10 MILLIGRAM, QD (1 TABLET DAILY)
     Route: 048
  10. LIPITOR [Concomitant]
     Active Substance: ATORVASTATIN CALCIUM
     Dosage: 20 MILLIGRAM, QPM (? IN THE EVENING)
     Route: 048
  11. MAGNESIUM ASPARTATE [Concomitant]
     Active Substance: MAGNESIUM ASPARTATE
     Dosage: 500 MILLIGRAM, BID (2 TABLETS TWICE A DAY)
     Route: 048
  12. PROLIA [Concomitant]
     Active Substance: DENOSUMAB
     Dosage: STRENGTH: 60 MG/ML, Q6M (1 INJECTION 6 MONTHLY)
  13. VESICARE [Concomitant]
     Active Substance: SOLIFENACIN SUCCINATE
     Dosage: 5 MILLIGRAM, QD (? DAILY)
     Route: 048
  14. XARELTO [Concomitant]
     Active Substance: RIVAROXABAN
     Dosage: 15 MILLIGRAM, QD (1 TABLET DAILY)
     Route: 048

REACTIONS (1)
  - Diarrhoea [Recovered/Resolved]

NARRATIVE: CASE EVENT DATE: 20220629
